FAERS Safety Report 6276510-1 (Version None)
Quarter: 2009Q3

REPORT INFORMATION
  Report Type: 
  Country: None (occurrence: None)
  Receive Date: 20090720
  Receipt Date: 20090706
  Transmission Date: 20100115
  Serious: Yes (Life-Threatening)
  Sender: FDA-Public Use
  Company Number: 2009EK001895

PATIENT
  Age: 4 Month

DRUGS (3)
  1. NICARDIPINE HCL [Suspect]
     Indication: DRUG USE FOR UNKNOWN INDICATION
     Dosage: IV
     Route: 042
  2. NITROPRUSSIDE (NITROPRUSSIDE) [Suspect]
     Indication: DRUG USE FOR UNKNOWN INDICATION
  3. ANESTHESIA [Concomitant]

REACTIONS (4)
  - CARDIAC ARREST [None]
  - DRUG ADMINISTRATION ERROR [None]
  - VASODILATATION [None]
  - VENTRICULAR TACHYCARDIA [None]
